FAERS Safety Report 5503176-8 (Version None)
Quarter: 2007Q4

REPORT INFORMATION
  Report Type: 
  Country: None (occurrence: None)
  Receive Date: 20071029
  Receipt Date: 20071029
  Transmission Date: 20080405
  Serious: No
  Sender: FDA-Public Use
  Company Number: None

PATIENT
  Age: 68 Year
  Sex: Male

DRUGS (1)
  1. VANCOMYCIN [Suspect]
     Indication: URINARY TRACT INFECTION STAPHYLOCOCCAL
     Dosage: 1500MG BID IV
     Route: 042
     Dates: start: 20070816, end: 20070823

REACTIONS (3)
  - ANTIBIOTIC LEVEL ABOVE THERAPEUTIC [None]
  - HEPATORENAL SYNDROME [None]
  - RENAL FAILURE ACUTE [None]
